FAERS Safety Report 5330394-4 (Version None)
Quarter: 2007Q2

REPORT INFORMATION
  Report Type: 
  Country: None (occurrence: None)
  Receive Date: 20070521
  Receipt Date: 20070516
  Transmission Date: 20071010
  Serious: Yes (Other)
  Sender: FDA-Public Use
  Company Number: DE-ROXANE LABORATORIES, INC-2007-DE-02967GD

PATIENT

DRUGS (3)
  1. HYDROCHLOROTHIAZIDE [Suspect]
     Indication: HYPERTENSION
     Route: 048
  2. AMLODIPINE [Suspect]
     Indication: HYPERTENSION
     Route: 048
  3. AMLODIPINE [Suspect]
     Route: 048

REACTIONS (2)
  - DRUG INEFFECTIVE [None]
  - OEDEMA PERIPHERAL [None]
